FAERS Safety Report 7637835-8 (Version None)
Quarter: 2011Q3

REPORT INFORMATION
  Report Type: 
  Country: None (occurrence: None)
  Receive Date: 20110713
  Receipt Date: 20110629
  Transmission Date: 20111222
  Serious: Yes (Hospitalization)
  Sender: FDA-Public Use
  Company Number: 2011PROUSA00451

PATIENT
  Age: 79 Year
  Sex: Male

DRUGS (1)
  1. PROVENGE [Suspect]
     Indication: PROSTATE CANCER METASTATIC
     Dosage: 250 ML, SINGLE, INTRAVENOUS
     Route: 042
     Dates: start: 20110418, end: 20110418

REACTIONS (13)
  - CHILLS [None]
  - RENAL FAILURE ACUTE [None]
  - HYPOPHAGIA [None]
  - DEHYDRATION [None]
  - FATIGUE [None]
  - CONFUSIONAL STATE [None]
  - WEIGHT DECREASED [None]
  - DISORIENTATION [None]
  - DECREASED APPETITE [None]
  - INFREQUENT BOWEL MOVEMENTS [None]
  - FLUID INTAKE REDUCED [None]
  - HEART RATE INCREASED [None]
  - FLUID RETENTION [None]
